FAERS Safety Report 22399778 (Version 7)
Quarter: 2024Q4

REPORT INFORMATION
  Report Type: Spontaneous
  Country: US (occurrence: US)
  Receive Date: 20230602
  Receipt Date: 20241108
  Transmission Date: 20250114
  Serious: No
  Sender: PFIZER
  Company Number: US-PFIZER INC-PV202300097038

PATIENT
  Age: 83 Year
  Sex: Male
  Weight: 99.11 kg

DRUGS (2)
  1. VYNDAMAX [Suspect]
     Active Substance: TAFAMIDIS
     Indication: Amyloidosis
     Dosage: 61 MG, 1X/DAY
     Route: 048
     Dates: start: 20230601
  2. INQOVI [Concomitant]
     Active Substance: CEDAZURIDINE\DECITABINE
     Indication: Leukaemia
     Dosage: 35-100, TAKE THREE OF THESE CAPSULES ONE A DAY FOR THREE DAYS EVERY MONTH

REACTIONS (2)
  - Dysgraphia [Unknown]
  - General physical health deterioration [Unknown]
